FAERS Safety Report 14749864 (Version 1)
Quarter: 2018Q2

REPORT INFORMATION
  Report Type: Spontaneous
  Country: FR (occurrence: FR)
  Receive Date: 20180412
  Receipt Date: 20180412
  Transmission Date: 20180711
  Serious: Yes (Hospitalization)
  Sender: FDA-Public Use
  Company Number: FR-ABBVIE-18K-056-2319347-00

PATIENT
  Age: 40 Year
  Sex: Female

DRUGS (1)
  1. HUMIRA [Suspect]
     Active Substance: ADALIMUMAB
     Indication: CROHN^S DISEASE
     Dosage: DURATION : 4 YEARS
     Route: 058

REACTIONS (4)
  - Live birth [Unknown]
  - Hidradenitis [Unknown]
  - Crohn^s disease [Unknown]
  - Exposure during pregnancy [Unknown]
